FAERS Safety Report 7372519-5 (Version None)
Quarter: 2011Q1

REPORT INFORMATION
  Report Type: 
  Country: None (occurrence: None)
  Receive Date: 20110315
  Receipt Date: 20110301
  Transmission Date: 20110831
  Serious: Yes (Hospitalization)
  Sender: FDA-Public Use
  Company Number: TCI2011A01688

PATIENT
  Age: 27 Year
  Sex: Male

DRUGS (3)
  1. TAKEPRON OD TABLETS 30(LANSOPRAZOLE) [Suspect]
     Dosage: 30 MG (30 MG,1 IN 1 D) PER ORAL
     Route: 048
     Dates: end: 20110117
  2. PREDNISOLONE [Concomitant]
  3. BONALON (ALENDRONIC ACID) [Concomitant]

REACTIONS (4)
  - HYPERAEMIA [None]
  - ERYTHEMA [None]
  - ORAL MUCOSAL ERYTHEMA [None]
  - CONJUNCTIVAL HYPERAEMIA [None]
